FAERS Safety Report 8276416-2 (Version None)
Quarter: 2012Q2

REPORT INFORMATION
  Report Type: 
  Country: None (occurrence: None)
  Receive Date: 20120412
  Receipt Date: 20120403
  Transmission Date: 20120825
  Serious: Yes (Hospitalization)
  Sender: FDA-Public Use
  Company Number: DE-BRISTOL-MYERS SQUIBB COMPANY-16024234

PATIENT
  Age: 62 Year
  Sex: Male
  Weight: 72 kg

DRUGS (4)
  1. DOCETAXEL [Suspect]
     Indication: HEAD AND NECK CANCER
     Dates: start: 20110713
  2. CETUXIMAB [Suspect]
     Indication: HEAD AND NECK CANCER
     Dates: start: 20110713
  3. CISPLATIN [Suspect]
     Indication: HEAD AND NECK CANCER
     Dates: start: 20110713
  4. FLUOROURACIL [Suspect]
     Indication: HEAD AND NECK CANCER
     Dates: start: 20110713

REACTIONS (3)
  - STAPHYLOCOCCAL BACTERAEMIA [None]
  - C-REACTIVE PROTEIN INCREASED [None]
  - GENERAL PHYSICAL CONDITION ABNORMAL [None]
